FAERS Safety Report 24740937 (Version 1)
Quarter: 2024Q4

REPORT INFORMATION
  Report Type: Spontaneous
  Country: US (occurrence: US)
  Receive Date: 20241217
  Receipt Date: 20241217
  Transmission Date: 20250115
  Serious: No
  Sender: ALVOGEN
  Company Number: US-ALVOGEN-2024095618

PATIENT
  Sex: Female

DRUGS (7)
  1. FENTANYL [Suspect]
     Active Substance: FENTANYL
     Indication: Pain
  2. FENTANYL [Suspect]
     Active Substance: FENTANYL
     Indication: Pain
     Dosage: HER PRESCRIPTION FOR FENTANYL WAS REFILLED ON 19-MAY-2023 FOR 12 MCG/HR PATCHES
     Dates: start: 2023
  3. FENTANYL [Suspect]
     Active Substance: FENTANYL
     Indication: Pain
     Dosage: REFILLED ON 17-JUNE-2023 FOR 25MCG/HR
     Dates: start: 2023
  4. FENTANYL [Suspect]
     Active Substance: FENTANYL
     Indication: Pain
     Dosage: REFILLED ON 13-AUG-2023 FOR 50 MCG/HR
     Dates: start: 2023
  5. FENTANYL [Suspect]
     Active Substance: FENTANYL
     Indication: Pain
     Dosage: THEN THE DOSAGE WENT UP AND DOWN
     Dates: start: 2023
  6. FENTANYL [Suspect]
     Active Substance: FENTANYL
     Indication: Pain
     Dosage: REFILLED ON 06-DEC-2023 FOR 75?MCG/HR
     Dates: start: 2023
  7. FENTANYL [Suspect]
     Active Substance: FENTANYL
     Indication: Pain
     Dosage: REFILLED ON MAR-2024 FOR 100 MCG/HR PATCHES
     Dates: start: 2024

REACTIONS (2)
  - Device use error [Unknown]
  - Circumstance or information capable of leading to medication error [Unknown]
